FAERS Safety Report 21694842 (Version 1)
Quarter: 2022Q4

REPORT INFORMATION
  Report Type: Spontaneous
  Country: CN (occurrence: CN)
  Receive Date: 20221207
  Receipt Date: 20221207
  Transmission Date: 20230112
  Serious: Yes (Hospitalization, Other)
  Sender: FDA-Public Use
  Company Number: CN-GILEAD-2022-0607415

PATIENT
  Age: 48 Year
  Sex: Male

DRUGS (1)
  1. VEMLIDY [Suspect]
     Active Substance: TENOFOVIR ALAFENAMIDE FUMARATE
     Indication: Hepatitis B
     Dosage: 1 DOSAGE FORM, QD
     Route: 065
     Dates: start: 202203

REACTIONS (8)
  - Ascites [Recovering/Resolving]
  - Hepatitis B DNA increased [Not Recovered/Not Resolved]
  - Hepatitis B surface antigen positive [Not Recovered/Not Resolved]
  - Hepatitis B e antigen positive [Not Recovered/Not Resolved]
  - Hepatitis B core antigen positive [Not Recovered/Not Resolved]
  - Renal disorder [Not Recovered/Not Resolved]
  - Suspected counterfeit product [Unknown]
  - Drug ineffective [Unknown]

NARRATIVE: CASE EVENT DATE: 20221122
